FAERS Safety Report 17066233 (Version 1)
Quarter: 2019Q4

REPORT INFORMATION
  Report Type: Spontaneous
  Country: US (occurrence: US)
  Receive Date: 20191122
  Receipt Date: 20191122
  Transmission Date: 20200122
  Serious: Yes (Hospitalization)
  Sender: FDA-Public Use
  Company Number: None

PATIENT
  Sex: Female

DRUGS (15)
  1. 3ML LL [Concomitant]
  2. ZOLOFT [Concomitant]
     Active Substance: SERTRALINE HYDROCHLORIDE
  3. ONE DAILY [Concomitant]
  4. TUMS [Concomitant]
     Active Substance: CALCIUM CARBONATE
  5. VITAMIN D [Concomitant]
     Active Substance: VITAMIN D NOS
  6. FISH OIL [Concomitant]
     Active Substance: FISH OIL
  7. YALE NEEDLES [Concomitant]
  8. CALCIUM [Concomitant]
     Active Substance: CALCIUM
  9. CHOR GONADOT [Concomitant]
  10. LETROZOLE. [Concomitant]
     Active Substance: LETROZOLE
  11. MARINOL [Concomitant]
     Active Substance: DRONABINOL
  12. LUPRON [Concomitant]
     Active Substance: LEUPROLIDE ACETATE
  13. MAGNESIUM [Concomitant]
     Active Substance: MAGNESIUM
  14. IBRANCE [Suspect]
     Active Substance: PALBOCICLIB
     Indication: BREAST CANCER FEMALE
     Route: 048
     Dates: start: 20170929
  15. VITAMIN B [Concomitant]
     Active Substance: VITAMIN B

REACTIONS (2)
  - Therapy cessation [None]
  - Chemotherapy [None]
